FAERS Safety Report 7801163-8 (Version None)
Quarter: 2011Q4

REPORT INFORMATION
  Report Type: 
  Country: None (occurrence: None)
  Receive Date: 20111007
  Receipt Date: 20110929
  Transmission Date: 20120403
  Serious: No
  Sender: FDA-Public Use
  Company Number: US-BIOGENIDEC-2011BI037599

PATIENT
  Age: 33 Year
  Sex: Female

DRUGS (1)
  1. TYSABRI [Suspect]
     Indication: MULTIPLE SCLEROSIS
     Route: 042
     Dates: start: 20110922

REACTIONS (5)
  - GAIT DISTURBANCE [None]
  - DYSPNOEA [None]
  - ASTHENIA [None]
  - OEDEMA PERIPHERAL [None]
  - ORAL CANDIDIASIS [None]
